FAERS Safety Report 23702804 (Version 1)
Quarter: 2024Q2

REPORT INFORMATION
  Report Type: Spontaneous
  Country: CN (occurrence: CN)
  Receive Date: 20240403
  Receipt Date: 20240403
  Transmission Date: 20240716
  Serious: Yes (Hospitalization, Other)
  Sender: FDA-Public Use
  Company Number: CN-BAYER-2024A047827

PATIENT
  Age: 76 Year
  Sex: Male
  Weight: 53 kg

DRUGS (4)
  1. XARELTO [Suspect]
     Active Substance: RIVAROXABAN
     Indication: Deep vein thrombosis
     Dosage: 15 MG, BID
     Route: 048
     Dates: start: 20240319, end: 20240323
  2. XARELTO [Suspect]
     Active Substance: RIVAROXABAN
     Indication: Anticoagulant therapy
     Route: 048
  3. ENOXAPARIN SODIUM [Suspect]
     Active Substance: ENOXAPARIN SODIUM
     Indication: Deep vein thrombosis
     Dosage: 4000 IU, BID
     Route: 058
     Dates: start: 20240312, end: 20240318
  4. ENOXAPARIN SODIUM [Suspect]
     Active Substance: ENOXAPARIN SODIUM
     Indication: Anticoagulant therapy

REACTIONS (8)
  - Upper gastrointestinal haemorrhage [Recovering/Resolving]
  - Prothrombin time prolonged [Recovering/Resolving]
  - Coagulation time prolonged [Recovering/Resolving]
  - Labelled drug-drug interaction issue [Unknown]
  - Prothrombin level decreased [Recovering/Resolving]
  - Prothrombin time ratio increased [Recovering/Resolving]
  - Activated partial thromboplastin time prolonged [Recovering/Resolving]
  - Fibrin degradation products increased [Not Recovered/Not Resolved]

NARRATIVE: CASE EVENT DATE: 20240320
